FAERS Safety Report 20053851 (Version 1)
Quarter: 2021Q4

REPORT INFORMATION
  Report Type: Report from Study
  Country: US (occurrence: None)
  Receive Date: 20211110
  Receipt Date: 20211110
  Transmission Date: 20220303
  Serious: Yes (Hospitalization)
  Sender: FDA-Public Use
  Company Number: US-ROCHE-2950653

PATIENT

DRUGS (17)
  1. VALGANCICLOVIR [Suspect]
     Active Substance: VALGANCICLOVIR
     Indication: Cytomegalovirus infection
     Route: 048
     Dates: start: 20210313, end: 20210313
  2. CIDOFOVIR [Suspect]
     Active Substance: CIDOFOVIR
     Indication: Cytomegalovirus viraemia
     Route: 042
     Dates: start: 20210604, end: 20210604
  3. PARACETAMOL, AMINOPHENAZONE, CAFFEINE AND CHLORPHENAMINE MALEATE [Concomitant]
  4. ALLOPURINOL [Concomitant]
     Active Substance: ALLOPURINOL
     Dates: start: 20190307
  5. ASPIRIN [Concomitant]
     Active Substance: ASPIRIN
     Dates: start: 20210209
  6. ATORVASTATIN [Concomitant]
     Active Substance: ATORVASTATIN
     Dates: start: 20200429
  7. BUPROPION [Concomitant]
     Active Substance: BUPROPION
     Dates: start: 20190313
  8. CARVEDILOL [Concomitant]
     Active Substance: CARVEDILOL
  9. CETIRIZINE [Concomitant]
     Active Substance: CETIRIZINE HYDROCHLORIDE
     Dates: start: 20190301
  10. FAMOTIDINE [Concomitant]
     Active Substance: FAMOTIDINE
     Dates: start: 20210209
  11. NYSTATIN [Concomitant]
     Active Substance: NYSTATIN
  12. SENNA [Concomitant]
     Active Substance: SENNA LEAF\SENNOSIDES\SENNOSIDES A AND B
     Dates: start: 20210209
  13. DOCUSATE SODIUM [Concomitant]
     Active Substance: DOCUSATE SODIUM
  14. TRIAMCINOLONE [Concomitant]
     Active Substance: TRIAMCINOLONE
     Dates: start: 20190307
  15. PREDNISONE [Concomitant]
     Active Substance: PREDNISONE
     Dates: start: 20210319
  16. MAGNESIUM OXIDE [Concomitant]
     Active Substance: MAGNESIUM OXIDE
     Dates: start: 20210218
  17. TACROLIMUS [Concomitant]
     Active Substance: TACROLIMUS
     Dates: start: 20210416

REACTIONS (2)
  - Cytomegalovirus infection [Not Recovered/Not Resolved]
  - Cytomegalovirus viraemia [Not Recovered/Not Resolved]
